FAERS Safety Report 9807562 (Version 1)
Quarter: 2014Q1

REPORT INFORMATION
  Report Type: Spontaneous
  Country: US (occurrence: US)
  Receive Date: 20140110
  Receipt Date: 20140110
  Transmission Date: 20141002
  Serious: No
  Sender: FDA-Public Use
  Company Number: US-SANOFI-AVENTIS-2013SA034077

PATIENT
  Age: 52 Year
  Sex: Male
  Weight: 99.79 kg

DRUGS (13)
  1. PLAVIX [Suspect]
     Route: 048
     Dates: end: 201303
  2. PLAVIX [Suspect]
     Route: 048
  3. BENICAR [Concomitant]
  4. UNKNOWDRUG [Concomitant]
  5. OMEPRAZOLE [Concomitant]
  6. FISH OIL [Concomitant]
  7. VITAMIN D [Concomitant]
  8. ALL OTHER THERAPEUTIC PRODUCTS [Concomitant]
  9. COMBIVENT /JOR/ [Concomitant]
  10. ALBUTEROL [Concomitant]
  11. SYMBICORT [Concomitant]
  12. ALL OTHER THERAPEUTIC PRODUCTS [Concomitant]
     Indication: RESPIRATORY DISORDER
  13. MTV [Concomitant]

REACTIONS (2)
  - Coagulopathy [Unknown]
  - Haemorrhage [Unknown]
